FAERS Safety Report 10974099 (Version 1)
Quarter: 2015Q1

REPORT INFORMATION
  Report Type: Spontaneous
  Country: US (occurrence: None)
  Receive Date: 20150226
  Receipt Date: 20150226
  Transmission Date: 20150721
  Serious: No
  Sender: FDA-Public Use
  Company Number: TPA2009A00976

PATIENT
  Age: 82 Year
  Sex: Male

DRUGS (9)
  1. HCT (HYDROCHLOROTHIAZIDE) [Concomitant]
     Active Substance: HYDROCHLOROTHIAZIDE
  2. COUMADIN (WARFARIN) [Concomitant]
  3. NORVASC [Concomitant]
     Active Substance: AMLODIPINE BESYLATE
  4. ULORIC [Suspect]
     Active Substance: FEBUXOSTAT
     Indication: GOUT
  5. ZMPLAR (PARICALCITOL) [Concomitant]
  6. MEDROL [Concomitant]
     Active Substance: METHYLPREDNISOLONE
  7. OMEGA 3 FISH OIL (OMEGA-3 TRIGLYCERIDES) [Concomitant]
  8. MYSOLINE [Concomitant]
     Active Substance: PRIMIDONE
  9. MULTIVITAMIN (ERGOCALCIFEROL, ASCORBIC ACID, FOLIC ACID, THIAMINE HYDROCHLORIDE, RETINOL, RIBOFLAVIN, NICOTINAMIDE, PHANTHENOL) [Concomitant]

REACTIONS (2)
  - Skin exfoliation [None]
  - Pruritus [None]
